FAERS Safety Report 10616855 (Version 1)
Quarter: 2014Q4

REPORT INFORMATION
  Report Type: Report from Study
  Country: EG (occurrence: EG)
  Receive Date: 20141201
  Receipt Date: 20141201
  Transmission Date: 20150529
  Serious: Yes (Death)
  Sender: FDA-Public Use
  Company Number: EG-SA-2014SA160173

PATIENT
  Age: 40 Year
  Sex: Female

DRUGS (1)
  1. LANTUS [Suspect]
     Active Substance: INSULIN GLARGINE
     Indication: DIABETES MELLITUS
     Dosage: DOSE: 80IU AT MORNING, 60IU AT 3PM, 60IU AT EVENING.
     Route: 058

REACTIONS (2)
  - Hypoglycaemia [Fatal]
  - Off label use [Unknown]

NARRATIVE: CASE EVENT DATE: 20140701
